FAERS Safety Report 4809302-8 (Version None)
Quarter: 2005Q4

REPORT INFORMATION
  Report Type: 
  Country: None (occurrence: None)
  Receive Date: 20051021
  Receipt Date: 20011130
  Transmission Date: 20060501
  Serious: Yes (Hospitalization)
  Sender: FDA-Public Use
  Company Number: USA011110030

PATIENT
  Age: 30 Year
  Sex: Female

DRUGS (1)
  1. ZYPREXA [Suspect]
     Dosage: 30 MG/DAY
     Dates: start: 20000101

REACTIONS (2)
  - PRESCRIBED OVERDOSE [None]
  - PULMONARY EMBOLISM [None]
